FAERS Safety Report 6499987-5 (Version None)
Quarter: 2009Q4

REPORT INFORMATION
  Report Type: 
  Country: None (occurrence: None)
  Receive Date: 20091216
  Receipt Date: 20091208
  Transmission Date: 20100525
  Serious: Yes (Other)
  Sender: FDA-Public Use
  Company Number: US-ASTRAZENECA-2007UW03818

PATIENT
  Age: 610 Month
  Sex: Female
  Weight: 91.6 kg

DRUGS (33)
  1. SEROQUEL [Suspect]
     Indication: SCHIZOPHRENIA
     Route: 048
     Dates: start: 19980601
  2. SEROQUEL [Suspect]
     Indication: ANXIETY
     Route: 048
     Dates: start: 19980601
  3. SEROQUEL [Suspect]
     Dosage: 25-400MG
     Route: 048
     Dates: start: 20011005
  4. SEROQUEL [Suspect]
     Dosage: 25-400MG
     Route: 048
     Dates: start: 20011005
  5. GLUCOTROL XL [Concomitant]
     Route: 048
     Dates: start: 20060417
  6. NEXIUM [Concomitant]
     Route: 048
  7. NEXIUM [Concomitant]
     Route: 048
     Dates: start: 20060417
  8. METFORMIN [Concomitant]
     Route: 048
     Dates: start: 20060417
  9. TRAZODONE HCL [Concomitant]
     Dosage: 50MG TO 150MG
     Route: 048
     Dates: start: 20060101
  10. BUSPAR [Concomitant]
     Dosage: 5MG TO 10MG, 30 MG
     Route: 048
     Dates: start: 20061201
  11. KENALOG IN ORABASE [Concomitant]
     Dosage: 1/4 INCH
     Route: 002
  12. PROMETHAZINE [Concomitant]
     Route: 048
     Dates: start: 20060417
  13. RISPERIDONE [Concomitant]
     Route: 048
  14. CYCLOBENZAPRINE [Concomitant]
     Route: 048
  15. METHOCARBAMOL [Concomitant]
     Route: 048
  16. AZITHROMYCIN [Concomitant]
     Route: 048
  17. ALBUTEROL [Concomitant]
     Dosage: 90MCG/ACT, EVERY 4 HOURS AS  NEEDED
  18. PROZAC [Concomitant]
     Dosage: 20MG TO 40MG
     Route: 048
     Dates: start: 20061201
  19. VALIUM [Concomitant]
     Route: 048
  20. STELAZINE [Concomitant]
     Route: 048
  21. ARTANE [Concomitant]
  22. ELAVIL [Concomitant]
  23. MAXZIDE [Concomitant]
     Route: 048
  24. BISACODYL [Concomitant]
     Dosage: 5 MG 2 TABS ONCE A DAY
     Route: 048
  25. SULINDAC [Concomitant]
     Route: 048
  26. LOVASTATIN [Concomitant]
     Route: 048
     Dates: start: 20060417
  27. GEODON [Concomitant]
     Dosage: 20 TO 80MG
     Route: 048
  28. PENICILLIN V [Concomitant]
     Route: 048
  29. MEPERIDINE HCL [Concomitant]
     Route: 042
  30. MIDAZOLAM HCL [Concomitant]
     Route: 042
  31. ZYPREXA [Concomitant]
     Indication: DEPRESSION
     Dates: start: 19970101
  32. ZYPREXA [Concomitant]
     Indication: SCHIZOPHRENIA
     Dates: start: 19970101
  33. LISINOPRIL [Concomitant]
     Route: 048
     Dates: start: 20060417

REACTIONS (6)
  - DIABETES MELLITUS INADEQUATE CONTROL [None]
  - DIABETIC GASTROPARESIS [None]
  - DIABETIC NEUROPATHY [None]
  - DIABETIC RETINOPATHY [None]
  - TYPE 2 DIABETES MELLITUS [None]
  - WEIGHT INCREASED [None]
